FAERS Safety Report 23276709 (Version 4)
Quarter: 2024Q1

REPORT INFORMATION
  Report Type: Spontaneous
  Country: CN (occurrence: CN)
  Receive Date: 20231208
  Receipt Date: 20240205
  Transmission Date: 20240409
  Serious: Yes (Other)
  Sender: FDA-Public Use
  Company Number: CN-GUERBET / FUNDTRIP PHARMACEUTICALS-CN-20230317

PATIENT
  Age: 65 Year
  Sex: Male

DRUGS (2)
  1. OPTIRAY [Suspect]
     Active Substance: IOVERSOL
     Indication: Angiogram
     Dosage: AT A RATE OF 6ML/SEC
     Dates: start: 20230630, end: 20230630
  2. UNSPECIFIED INGREDIENT [Concomitant]
     Active Substance: UNSPECIFIED INGREDIENT
     Indication: Hypertension
     Route: 048

REACTIONS (2)
  - Acute generalised exanthematous pustulosis [Recovered/Resolved]
  - Tachycardia [Recovered/Resolved]

NARRATIVE: CASE EVENT DATE: 20230702
